FAERS Safety Report 4543182-3 (Version None)
Quarter: 2005Q1

REPORT INFORMATION
  Report Type: 
  Country: None (occurrence: None)
  Receive Date: 20050103
  Receipt Date: 20041215
  Transmission Date: 20050727
  Serious: Yes (Other)
  Sender: FDA-Public Use
  Company Number: JP-JNJFOC-20041206680

PATIENT
  Sex: Male

DRUGS (6)
  1. ITRIZOLE [Suspect]
     Route: 049
  2. ITRIZOLE [Suspect]
     Route: 049
  3. ITRIZOLE [Suspect]
     Indication: ONYCHOMYCOSIS
     Route: 049
  4. AMOROLFINE HYDROCHLORIDE [Concomitant]
     Indication: ONYCHOMYCOSIS
  5. SALICYLIC ACID [Concomitant]
     Indication: ONYCHOMYCOSIS
  6. NETICONAZOLE HYDROCHLORIDE [Concomitant]
     Indication: ONYCHOMYCOSIS

REACTIONS (4)
  - BLOOD ALKALINE PHOSPHATASE INCREASED [None]
  - BLOOD POTASSIUM INCREASED [None]
  - BLOOD UREA INCREASED [None]
  - GAMMA-GLUTAMYLTRANSFERASE INCREASED [None]
